FAERS Safety Report 7049426 (Version 2)
Quarter: 2013Q4

REPORT INFORMATION
  Report Type: Spontaneous
  Country: US (occurrence: None)
  Receive Date: 20090702
  Receipt Date: 20131216
  Transmission Date: 20140711
  Serious: Yes (Other)
  Sender: FDA-Public Use
  Company Number: 2009S1004933

PATIENT
  Age: 62 Year
  Sex: Male

DRUGS (1)
  1. SODIUM PHOSPHATE, DIBASIC\SODIUM PHOSPHATE, MONOBASIC, ANHYDROUS [Suspect]
     Indication: COLONOSCOPY
     Dosage: 90 ML;TOTAL;PO
     Route: 048
     Dates: start: 20080429, end: 20080429

REACTIONS (7)
  - Nausea [None]
  - Fatigue [None]
  - Asthenia [None]
  - Renal failure acute [None]
  - Dialysis [None]
  - Toxicity to various agents [None]
  - Dysgeusia [None]
